FAERS Safety Report 18321163 (Version 2)
Quarter: 2020Q4

REPORT INFORMATION
  Report Type: Spontaneous
  Country: US (occurrence: US)
  Receive Date: 20200928
  Receipt Date: 20201007
  Transmission Date: 20210113
  Serious: No
  Sender: FDA-Public Use
  Company Number: US-JNJFOC-20200940826

PATIENT
  Sex: Female
  Weight: 80.81 kg

DRUGS (1)
  1. WOMENS ROGAINE [Suspect]
     Active Substance: MINOXIDIL
     Indication: PRODUCT USED FOR UNKNOWN INDICATION
     Dosage: 1ML,?PRODUCT WAS LAST ADMINISTERED ON 20-SEPT-2020
     Route: 061
     Dates: start: 201908

REACTIONS (1)
  - Drug ineffective [Unknown]
